FAERS Safety Report 9529929 (Version 2)
Quarter: 2013Q4

REPORT INFORMATION
  Report Type: Spontaneous
  Country: FR (occurrence: FR)
  Receive Date: 20130917
  Receipt Date: 20131014
  Transmission Date: 20140711
  Serious: Yes (Other)
  Sender: FDA-Public Use
  Company Number: FR-ROCHE-1276399

PATIENT
  Sex: Male

DRUGS (6)
  1. LUCENTIS [Suspect]
     Indication: MACULAR OEDEMA
     Route: 050
     Dates: start: 20120831
  2. NEORAL [Concomitant]
     Route: 065
     Dates: start: 20110901
  3. MYFORTIC [Concomitant]
     Route: 065
     Dates: start: 20110901
  4. ARANESP [Concomitant]
     Route: 065
     Dates: start: 200906
  5. ASPEGIC (FRANCE) [Concomitant]
     Route: 065
     Dates: start: 20100501
  6. NOVORAPID [Concomitant]
     Route: 065
     Dates: start: 201011

REACTIONS (1)
  - Amaurosis [Recovered/Resolved]
